FAERS Safety Report 23427950 (Version 4)
Quarter: 2024Q1

REPORT INFORMATION
  Report Type: Spontaneous
  Country: US (occurrence: US)
  Receive Date: 20240122
  Receipt Date: 20240329
  Transmission Date: 20240409
  Serious: No
  Sender: FDA-Public Use
  Company Number: US-PFIZER INC-202300457636

PATIENT
  Age: 8 Year
  Sex: Male
  Weight: 28.118 kg

DRUGS (4)
  1. GENOTROPIN [Suspect]
     Active Substance: SOMATROPIN
     Indication: Growth hormone deficiency
     Dosage: AT NIGHT, TAKES ON AVERAGE 1.05
     Route: 058
     Dates: start: 20230920
  2. GENOTROPIN [Suspect]
     Active Substance: SOMATROPIN
     Dosage: THEY GIVE 1.0 ONE DAY AND THE NEXT DAY GIVE 1.1
  3. GENOTROPIN [Suspect]
     Active Substance: SOMATROPIN
     Dosage: 1MG ALTERNATING WITH 1.1MG
     Dates: start: 202309
  4. GENOTROPIN [Suspect]
     Active Substance: SOMATROPIN
     Dosage: 1MG ALTERNATING WITH 1.1MG
     Dates: start: 202309

REACTIONS (7)
  - Device mechanical issue [Unknown]
  - Wrong technique in device usage process [Unknown]
  - Device leakage [Unknown]
  - Device breakage [Unknown]
  - Device information output issue [Unknown]
  - Poor quality device used [Unknown]
  - Product prescribing error [Unknown]

NARRATIVE: CASE EVENT DATE: 20240301
